FAERS Safety Report 10478455 (Version 2)
Quarter: 2014Q4

REPORT INFORMATION
  Report Type: Spontaneous
  Country: US (occurrence: US)
  Receive Date: 20140926
  Receipt Date: 20141209
  Transmission Date: 20150528
  Serious: Yes (Other)
  Sender: FDA-Public Use
  Company Number: US-PFIZER INC-2014264365

PATIENT
  Age: 69 Year
  Sex: Female

DRUGS (2)
  1. DILANTIN [Suspect]
     Active Substance: PHENYTOIN
     Indication: EPILEPSY
     Dosage: 4 DF, 1X/DAY (4 ORANGE BAND DILANTIN PER DAY)
     Dates: end: 1980
  2. DILANTIN [Suspect]
     Active Substance: PHENYTOIN
     Indication: SEIZURE

REACTIONS (3)
  - Gingival disorder [Unknown]
  - Tooth loss [Unknown]
  - Tooth disorder [Unknown]

NARRATIVE: CASE EVENT DATE: 1964
